FAERS Safety Report 19559929 (Version 4)
Quarter: 2021Q4

REPORT INFORMATION
  Report Type: Other
  Country: CN (occurrence: CN)
  Receive Date: 20210716
  Receipt Date: 20211231
  Transmission Date: 20220303
  Serious: Yes (Other)
  Sender: FDA-Public Use
  Company Number: CN-002147023-NVSC2021CN005907

PATIENT
  Age: 46 Year
  Sex: Male
  Weight: 67 kg

DRUGS (11)
  1. RANIBIZUMAB [Suspect]
     Active Substance: RANIBIZUMAB
     Indication: Diabetic retinal oedema
     Route: 065
     Dates: start: 20200424
  2. RANIBIZUMAB [Suspect]
     Active Substance: RANIBIZUMAB
     Route: 065
     Dates: start: 20200529
  3. RANIBIZUMAB [Suspect]
     Active Substance: RANIBIZUMAB
     Route: 065
     Dates: start: 20200710
  4. RANIBIZUMAB [Suspect]
     Active Substance: RANIBIZUMAB
     Route: 065
     Dates: start: 20201113
  5. RANIBIZUMAB [Suspect]
     Active Substance: RANIBIZUMAB
     Route: 065
     Dates: start: 20210108
  6. RANIBIZUMAB [Suspect]
     Active Substance: RANIBIZUMAB
     Route: 065
     Dates: start: 20210317
  7. RANIBIZUMAB [Suspect]
     Active Substance: RANIBIZUMAB
     Route: 065
     Dates: start: 20210512
  8. ESCULIN [Concomitant]
     Active Substance: ESCULIN
     Indication: Diabetic retinal oedema
     Dosage: 1 DROP
     Route: 031
  9. EPALRESTAT [Concomitant]
     Active Substance: EPALRESTAT
     Indication: Diabetic retinal oedema
     Route: 048
     Dates: start: 20191024
  10. EPALRESTAT [Concomitant]
     Active Substance: EPALRESTAT
     Indication: Diabetic neuropathy
  11. HYALURONIC ACID SODIUM [Concomitant]
     Indication: Diabetic retinal oedema
     Dosage: 1 DROP
     Route: 031
     Dates: start: 20180830

REACTIONS (4)
  - Cataract [Recovered/Resolved]
  - Retinal haemorrhage [Unknown]
  - Refraction disorder [Recovered/Resolved]
  - Glycosylated haemoglobin increased [Unknown]

NARRATIVE: CASE EVENT DATE: 20201208
